FAERS Safety Report 6254272-1 (Version None)
Quarter: 2009Q3

REPORT INFORMATION
  Report Type: 
  Country: None (occurrence: None)
  Receive Date: 20090702
  Receipt Date: 20090622
  Transmission Date: 20100115
  Serious: Yes (Other)
  Sender: FDA-Public Use
  Company Number: GB-BAYER-200924325GPV

PATIENT
  Age: 39 Year
  Sex: Female

DRUGS (5)
  1. NAPROXEN [Suspect]
     Indication: PAIN
     Route: 065
  2. LEVOTHYROXINE SODIUM [Suspect]
     Indication: HYPOTHYROIDISM
     Route: 065
  3. REBIF [Suspect]
     Indication: MULTIPLE SCLEROSIS
     Route: 058
     Dates: start: 20081119
  4. CITALOPRAM HYDROBROMIDE [Suspect]
     Indication: DEPRESSION
     Route: 065
  5. AMANTADINE HCL [Suspect]
     Indication: FATIGUE
     Route: 065

REACTIONS (1)
  - RETINAL VEIN OCCLUSION [None]
